FAERS Safety Report 10422708 (Version 1)
Quarter: 2014Q3

REPORT INFORMATION
  Report Type: Spontaneous
  Country: FR (occurrence: FR)
  Receive Date: 20140902
  Receipt Date: 20140902
  Transmission Date: 20150326
  Serious: Yes (Hospitalization, Other)
  Sender: FDA-Public Use
  Company Number: FR-AUROBINDO-AUR-APL-2014-09231

PATIENT
  Sex: Female

DRUGS (6)
  1. NEO-MERCAZOLE [Suspect]
     Active Substance: CARBIMAZOLE
     Dosage: 30 MG, DAILY
     Route: 048
     Dates: start: 20140714
  2. NEO-MERCAZOLE [Suspect]
     Active Substance: CARBIMAZOLE
     Dosage: 20 MG, DAILY
     Route: 048
     Dates: start: 20140718, end: 20140729
  3. MIRTAZAPINE ARROW 15MG [Suspect]
     Active Substance: MIRTAZAPINE
     Indication: PRODUCT USED FOR UNKNOWN INDICATION
     Dosage: 1 DF, UNK
     Route: 048
     Dates: start: 20140721, end: 20140728
  4. COLCHICINE OPOCALCIUM [Suspect]
     Active Substance: COLCHICINE
     Indication: CHONDROCALCINOSIS
     Dosage: 1 DF, UNK
     Route: 048
     Dates: start: 20140724, end: 20140728
  5. NEO-MERCAZOLE [Suspect]
     Active Substance: CARBIMAZOLE
     Indication: HYPERTHYROIDISM
     Dosage: 20 MG, 3 TIMES A DAY
     Route: 048
     Dates: start: 20140606
  6. NEO-MERCAZOLE [Suspect]
     Active Substance: CARBIMAZOLE
     Dosage: 20 MG, TWO TIMES A DAY
     Route: 048
     Dates: start: 20140624

REACTIONS (2)
  - Malaise [Unknown]
  - Neutropenia [Recovering/Resolving]
